FAERS Safety Report 5291057-7 (Version None)
Quarter: 2007Q2

REPORT INFORMATION
  Report Type: 
  Country: None (occurrence: None)
  Receive Date: 20070409
  Receipt Date: 20070326
  Transmission Date: 20071010
  Serious: Yes (Hospitalization, Other)
  Sender: FDA-Public Use
  Company Number: 2007AC00561

PATIENT
  Age: 53 Year
  Sex: Female

DRUGS (2)
  1. TAMOXIFEN CITRATE [Suspect]
     Indication: BREAST CANCER
     Route: 048
  2. RADIATION [Concomitant]
     Indication: BREAST CANCER

REACTIONS (3)
  - ARTHRITIS [None]
  - CHOLESTASIS [None]
  - VASCULITIS [None]
